FAERS Safety Report 19704100 (Version 2)
Quarter: 2021Q3

REPORT INFORMATION
  Report Type: Spontaneous
  Country: US (occurrence: US)
  Receive Date: 20210816
  Receipt Date: 20210827
  Transmission Date: 20211014
  Serious: Yes (Other)
  Sender: FDA-Public Use
  Company Number: US-PFIZER INC-202101012020

PATIENT
  Age: 51 Year
  Sex: Female

DRUGS (4)
  1. GABAPENTIN. [Suspect]
     Active Substance: GABAPENTIN
     Indication: TRIGEMINAL NEURALGIA
     Dosage: 1 DF, 2X/DAY
  2. GABAPENTIN. [Suspect]
     Active Substance: GABAPENTIN
     Dosage: 2 TABS AT NIGHT AND 1 TAB IN THE MORNING
  3. GABAPENTIN. [Suspect]
     Active Substance: GABAPENTIN
     Dosage: 1 DF, 1X/DAY (AT NIGHT)
  4. GABAPENTIN. [Suspect]
     Active Substance: GABAPENTIN
     Dosage: 2 TABS AT NIGHT AND 1 TAB IN THE MORNING AND 1 TAB AT LUNCH

REACTIONS (5)
  - Anxiety [Unknown]
  - Panic attack [Unknown]
  - Off label use [Unknown]
  - Muscular weakness [Unknown]
  - Tremor [Unknown]
